FAERS Safety Report 6603781-1 (Version None)
Quarter: 2010Q1

REPORT INFORMATION
  Report Type: 
  Country: None (occurrence: None)
  Receive Date: 20100226
  Receipt Date: 20090127
  Transmission Date: 20100710
  Serious: No
  Sender: FDA-Public Use
  Company Number: A0765473A

PATIENT
  Age: 55 Year
  Sex: Male

DRUGS (4)
  1. LAMICTAL CD [Suspect]
     Indication: BIPOLAR DISORDER
     Dosage: 200MG TWICE PER DAY
     Route: 048
     Dates: start: 20071001, end: 20081103
  2. WELLBUTRIN XL [Suspect]
     Indication: DEPRESSION
     Dosage: 450MG PER DAY
     Route: 048
     Dates: start: 20080401, end: 20081027
  3. XANAX [Concomitant]
  4. EFFEXOR [Concomitant]

REACTIONS (4)
  - AMNESIA [None]
  - ILL-DEFINED DISORDER [None]
  - INSOMNIA [None]
  - PANIC ATTACK [None]
